FAERS Safety Report 11648843 (Version 3)
Quarter: 2015Q4

REPORT INFORMATION
  Report Type: Spontaneous
  Country: US (occurrence: US)
  Receive Date: 20151021
  Receipt Date: 20151229
  Transmission Date: 20160304
  Serious: Yes (Death)
  Sender: FDA-Public Use
  Company Number: US-PFIZER INC-2015336092

PATIENT
  Age: 75 Year
  Sex: Female

DRUGS (7)
  1. METOPROLOL TARTRATE. [Concomitant]
     Active Substance: METOPROLOL TARTRATE
     Dosage: UNK
  2. IBRANCE [Suspect]
     Active Substance: PALBOCICLIB
     Dosage: UNK
     Dates: start: 20150616
  3. VENLAFAXINE HCL [Concomitant]
     Active Substance: VENLAFAXINE HYDROCHLORIDE
     Dosage: UNK
  4. EMEND [Concomitant]
     Active Substance: APREPITANT
     Dosage: UNK
  5. HYDROCODONE BITARTRATE AND ACETAMINOPHEN [Concomitant]
     Active Substance: ACETAMINOPHEN\HYDROCODONE BITARTRATE
     Dosage: UNK
  6. NEUPOGEN [Concomitant]
     Active Substance: FILGRASTIM
     Dosage: UNK
  7. TAMOXIFEN CITRATE. [Concomitant]
     Active Substance: TAMOXIFEN CITRATE
     Dosage: UNK

REACTIONS (4)
  - Blood count abnormal [Unknown]
  - Product use issue [Unknown]
  - Pleural effusion [Unknown]
  - Death [Fatal]

NARRATIVE: CASE EVENT DATE: 20151215
